FAERS Safety Report 26019167 (Version 2)
Quarter: 2025Q4

REPORT INFORMATION
  Report Type: Spontaneous
  Country: US (occurrence: US)
  Receive Date: 20251110
  Receipt Date: 20251122
  Transmission Date: 20260117
  Serious: No
  Sender: MDD OPERATIONS
  Company Number: US-MDD US Operations-MDD202508-003233

PATIENT
  Age: 67 Year
  Sex: Male

DRUGS (19)
  1. ONAPGO [Suspect]
     Active Substance: APOMORPHINE HYDROCHLORIDE
     Indication: Parkinson^s disease
     Dosage: PER HOUR
     Dates: start: 20250819
  2. ONAPGO [Suspect]
     Active Substance: APOMORPHINE HYDROCHLORIDE
     Dosage: FOR 16 HOURS
     Dates: start: 202508
  3. ONAPGO [Suspect]
     Active Substance: APOMORPHINE HYDROCHLORIDE
     Dosage: 3MG PER HOUR, 12 HOURS A DAY, 7 DAYS A WEEK
  4. APOKYN [Suspect]
     Active Substance: APOMORPHINE HYDROCHLORIDE
     Indication: Product used for unknown indication
     Dosage: NOT PROVIDED
  5. CARBIDOPA\LEVODOPA [Concomitant]
     Active Substance: CARBIDOPA\LEVODOPA
     Dosage: AT NIGHT
  6. BUSPIRONE [Concomitant]
     Active Substance: BUSPIRONE HYDROCHLORIDE
     Dosage: NOT PROVIDED
  7. ESOMEPRAZOLE [Concomitant]
     Active Substance: ESOMEPRAZOLE
     Dosage: NOT PROVIDED
  8. FINASTERIDE [Concomitant]
     Active Substance: FINASTERIDE
     Dosage: NOT PROVIDED
  9. MEMANTINE [Concomitant]
     Active Substance: MEMANTINE
     Dosage: NOT PROVIDED
  10. TAMSULOSIN [Concomitant]
     Active Substance: TAMSULOSIN
     Dosage: NOT PROVIDED
  11. QUETIAPINE [Concomitant]
     Active Substance: QUETIAPINE
     Dosage: NOT PROVIDED
  12. VITAMIN C [Concomitant]
     Active Substance: ASCORBIC ACID
     Dosage: NOT PROVIDED
  13. MAGNESIUM [Concomitant]
     Active Substance: MAGNESIUM
     Dosage: NOT PROVIDED
  14. Moringa [Concomitant]
     Dosage: NOT PROVIDED
  15. MELATONIN [Concomitant]
     Active Substance: MELATONIN
     Dosage: NOT PROVIDED
  16. SENNA [Concomitant]
     Active Substance: SENNOSIDES
     Dosage: NOT PROVIDED
  17. Triphala [Concomitant]
     Dosage: NOT PROVIDED
  18. ZINC [Concomitant]
     Active Substance: ZINC
     Dosage: AT NIGHT TO SLEEP
  19. CANNABIS SATIVA SUBSP. INDICA TOP [Concomitant]
     Active Substance: CANNABIS SATIVA SUBSP. INDICA TOP
     Indication: Sleep disorder
     Dosage: AT NIGHT TO SLEEP

REACTIONS (7)
  - Freezing phenomenon [Recovered/Resolved]
  - Somnolence [Not Recovered/Not Resolved]
  - Fatigue [Unknown]
  - Confusional state [Unknown]
  - Gait disturbance [Recovered/Resolved]
  - Headache [Recovered/Resolved]
  - Device issue [Unknown]

NARRATIVE: CASE EVENT DATE: 20250819
